FAERS Safety Report 4519821-X (Version None)
Quarter: 2004Q4

REPORT INFORMATION
  Report Type: 
  Country: None (occurrence: None)
  Receive Date: 20041201
  Receipt Date: 20041201
  Transmission Date: 20050328
  Serious: Yes (Hospitalization)
  Sender: FDA-Public Use
  Company Number: None

PATIENT
  Age: 55 Year
  Sex: Male
  Weight: 93 kg

DRUGS (12)
  1. WARFARIN SODIUM [Suspect]
     Indication: MITRAL VALVE REPLACEMENT
     Dosage: VARIOUS, VARIOUS, ORAL
     Route: 048
  2. TRIAMCINOLONE [Concomitant]
  3. ALBUTEROL SULFATE AND IPRATROPIUM BROMIDE [Concomitant]
  4. FOLIC ACID [Concomitant]
  5. IRBESARTAN [Concomitant]
  6. MULTI-VITAMIN [Concomitant]
  7. OMEPRAZOLE [Concomitant]
  8. THIAMINE HCL [Concomitant]
  9. COUMADIN [Concomitant]
  10. ATENOLOL [Concomitant]
  11. NITROGLYCERIN [Concomitant]
  12. TERBINAFINE HYDROCHLORIDE CREAM 1% [Concomitant]

REACTIONS (1)
  - DRUG LEVEL INCREASED [None]
